FAERS Safety Report 6313807-0 (Version None)
Quarter: 2009Q3

REPORT INFORMATION
  Report Type: 
  Country: None (occurrence: None)
  Receive Date: 20090818
  Receipt Date: 20090512
  Transmission Date: 20100115
  Serious: Yes (Hospitalization)
  Sender: FDA-Public Use
  Company Number: US-BRISTOL-MYERS SQUIBB COMPANY-14610943

PATIENT
  Age: 46 Year
  Sex: Female
  Weight: 57 kg

DRUGS (5)
  1. REYATAZ [Suspect]
     Indication: HIV INFECTION
     Dosage: STARTED APPROM ON 09MAR09
     Route: 048
     Dates: start: 20090301
  2. NORVIR [Suspect]
     Indication: HIV INFECTION
     Route: 048
     Dates: start: 20090301
  3. EPIVIR [Suspect]
     Indication: HIV INFECTION
     Dosage: EPIVIR SOLUTION
     Route: 048
     Dates: start: 20090301
  4. ABACAVIR [Suspect]
     Indication: HIV INFECTION
     Route: 048
  5. ANTIHYPERTENSIVE [Suspect]

REACTIONS (2)
  - ELECTROCARDIOGRAM QT PROLONGED [None]
  - NODAL RHYTHM [None]
